FAERS Safety Report 12138434 (Version 1)
Quarter: 2016Q1

REPORT INFORMATION
  Report Type: Spontaneous
  Country: US (occurrence: US)
  Receive Date: 20160302
  Receipt Date: 20160302
  Transmission Date: 20160526
  Serious: No
  Sender: FDA-Public Use
  Company Number: CHPA2016US002725

PATIENT
  Age: 73 Year
  Sex: Female

DRUGS (1)
  1. VOLTAREN [Suspect]
     Active Substance: DICLOFENAC SODIUM
     Indication: TENDONITIS
     Dosage: UNK, BID
     Route: 061
     Dates: start: 20150927

REACTIONS (4)
  - Expired product administered [Unknown]
  - Therapeutic response unexpected [Unknown]
  - Product use issue [Unknown]
  - Wrong technique in product usage process [Unknown]
